FAERS Safety Report 5416441-X (Version None)
Quarter: 2007Q3

REPORT INFORMATION
  Report Type: 
  Country: None (occurrence: None)
  Receive Date: 20070814
  Receipt Date: 20070802
  Transmission Date: 20080115
  Serious: Yes (Other)
  Sender: FDA-Public Use
  Company Number: 1-15186007 /MED-07160

PATIENT
  Age: 49 Year
  Sex: Male

DRUGS (4)
  1. GABAPENTIN [Suspect]
     Indication: ARTHRALGIA
     Dosage: SEE BOX B.5., ORAL
     Route: 048
  2. CARBAMAZEPINE [Concomitant]
  3. LOVASTATIN [Concomitant]
  4. ATENOLOL [Concomitant]

REACTIONS (2)
  - CONDITION AGGRAVATED [None]
  - RENAL IMPAIRMENT [None]
